FAERS Safety Report 9783845 (Version 1)
Quarter: 2013Q4

REPORT INFORMATION
  Report Type: Spontaneous
  Country: US (occurrence: US)
  Receive Date: 20131226
  Receipt Date: 20131226
  Transmission Date: 20140711
  Serious: Yes (Other)
  Sender: FDA-Public Use
  Company Number: US-PFIZER INC-2013365384

PATIENT
  Age: 27 Year
  Sex: Male
  Weight: 81.63 kg

DRUGS (3)
  1. VIAGRA [Suspect]
     Indication: ERECTILE DYSFUNCTION
     Dosage: UNK, AS NEEDED
     Route: 048
     Dates: start: 201310
  2. VIAGRA [Suspect]
     Dosage: 4 DF, (AT A TIME) AS NEEDED
     Route: 048
     Dates: start: 20131219
  3. COCAINE [Suspect]
     Dosage: UNK

REACTIONS (1)
  - Erection increased [Not Recovered/Not Resolved]
